FAERS Safety Report 4584020-2 (Version None)
Quarter: 2005Q1

REPORT INFORMATION
  Report Type: 
  Country: None (occurrence: None)
  Receive Date: 20050211
  Receipt Date: 20050203
  Transmission Date: 20050727
  Serious: Yes (Hospitalization)
  Sender: FDA-Public Use
  Company Number: LTI2005A00030

PATIENT
  Age: 56 Year
  Sex: Female

DRUGS (2)
  1. ACTOS [Suspect]
     Indication: CONGENITAL GENERALISED LIPODYSTROPHY
     Dosage: 30 MG (30 MG, 1 IN 1 D), ORAL
     Route: 048
     Dates: start: 20031201, end: 20050101
  2. COAPPROVEL (KARVEA HCT) [Concomitant]

REACTIONS (2)
  - ANTI-PLATELET ANTIBODY POSITIVE [None]
  - THROMBOCYTOPENIA [None]
